FAERS Safety Report 20635519 (Version 1)
Quarter: 2022Q1

REPORT INFORMATION
  Report Type: Spontaneous
  Country: US (occurrence: US)
  Receive Date: 20220325
  Receipt Date: 20220325
  Transmission Date: 20220424
  Serious: No
  Sender: FDA-Public Use
  Company Number: US-CIPLA LTD.-2021US03451

PATIENT

DRUGS (2)
  1. NABUMETONE [Suspect]
     Active Substance: NABUMETONE
     Indication: Osteoarthritis
     Dosage: 750 MILLIGRAM, QD (ONE IN MORNING)
     Route: 065
  2. NABUMETONE [Suspect]
     Active Substance: NABUMETONE
     Indication: Osteoarthritis
     Dosage: 750 MILLIGRAM, QD (SYGEN- ONE IN EVENING)
     Route: 065

REACTIONS (2)
  - Joint swelling [Unknown]
  - Erythema [Unknown]
